FAERS Safety Report 19497322 (Version 1)
Quarter: 2021Q3

REPORT INFORMATION
  Report Type: Spontaneous
  Country: US (occurrence: US)
  Receive Date: 20210706
  Receipt Date: 20210706
  Transmission Date: 20211014
  Serious: Yes (Other)
  Sender: FDA-Public Use
  Company Number: None

PATIENT
  Age: 48 Year
  Sex: Male
  Weight: 120.15 kg

DRUGS (2)
  1. WELLBUTRIN XL [Suspect]
     Active Substance: BUPROPION HYDROCHLORIDE
     Indication: OBESITY
     Route: 048
     Dates: start: 20210701, end: 20210706
  2. NALTREXONE [Suspect]
     Active Substance: NALTREXONE
     Route: 048
     Dates: start: 20210701, end: 20210706

REACTIONS (1)
  - Confusional state [None]

NARRATIVE: CASE EVENT DATE: 20210705
